FAERS Safety Report 24747648 (Version 2)
Quarter: 2025Q2

REPORT INFORMATION
  Report Type: Spontaneous
  Country: US (occurrence: US)
  Receive Date: 20241218
  Receipt Date: 20250425
  Transmission Date: 20250716
  Serious: Yes (Hospitalization, Other)
  Sender: CHEPLAPHARM
  Company Number: US-ROCHE-10000137082

PATIENT
  Age: 56 Year
  Sex: Female

DRUGS (20)
  1. CLONAZEPAM [Suspect]
     Active Substance: CLONAZEPAM
     Indication: Sleep disorder
  2. OCREVUS [Suspect]
     Active Substance: OCRELIZUMAB
     Indication: Relapsing multiple sclerosis
     Route: 042
     Dates: start: 20190218
  3. OCREVUS [Suspect]
     Active Substance: OCRELIZUMAB
     Indication: Relapsing multiple sclerosis
  4. DULOXETINE [Concomitant]
     Active Substance: DULOXETINE
  5. ESTRACE [Concomitant]
     Active Substance: ESTRADIOL
  6. BACITRACIN [Concomitant]
     Active Substance: BACITRACIN
  7. BACLOFEN [Concomitant]
     Active Substance: BACLOFEN
  8. DOXYCYCLINE HYCLATE [Concomitant]
     Active Substance: DOXYCYCLINE HYCLATE
  9. FLUCONAZOLE [Concomitant]
     Active Substance: FLUCONAZOLE
  10. METFORMIN [Concomitant]
     Active Substance: METFORMIN HYDROCHLORIDE
  11. PREGABALIN [Concomitant]
     Active Substance: PREGABALIN
  12. TRAZODONE [Concomitant]
     Active Substance: TRAZODONE HYDROCHLORIDE
  13. DEMANNOSE [Concomitant]
     Active Substance: DEMANNOSE
  14. MUCINEX [Concomitant]
     Active Substance: GUAIFENESIN
  15. MYRBETRIQ [Concomitant]
     Active Substance: MIRABEGRON
  16. VITAMIN C [Concomitant]
     Active Substance: ASCORBIC ACID
  17. EPINEPHRINE [Concomitant]
     Active Substance: EPINEPHRINE
  18. FAMOTIDINE [Concomitant]
     Active Substance: FAMOTIDINE
  19. METHYLPREDNISOLONE [Concomitant]
     Active Substance: METHYLPREDNISOLONE
  20. ALBUTEROL [Concomitant]
     Active Substance: ALBUTEROL

REACTIONS (34)
  - Nephrolithiasis [Recovered/Resolved]
  - Sepsis [Recovered/Resolved]
  - Urinary tract infection [Unknown]
  - Demyelination [Unknown]
  - Neurogenic bladder [Unknown]
  - Vision blurred [Unknown]
  - Asthenia [Unknown]
  - Insomnia [Unknown]
  - Tinnitus [Unknown]
  - Pain [Unknown]
  - Headache [Unknown]
  - Gait disturbance [Unknown]
  - Blood glucose increased [Unknown]
  - Blood creatinine decreased [Unknown]
  - Blood chloride increased [Unknown]
  - Haemoglobin decreased [Unknown]
  - Haematocrit decreased [Unknown]
  - Off label use [Unknown]
  - Anion gap decreased [Unknown]
  - Aspartate aminotransferase increased [Unknown]
  - Bacterial infection [Unknown]
  - Blood albumin decreased [Unknown]
  - Blood alkaline phosphatase increased [Unknown]
  - Blood magnesium decreased [Unknown]
  - Blood potassium decreased [Unknown]
  - Blood urea nitrogen/creatinine ratio increased [Unknown]
  - COVID-19 [Recovered/Resolved]
  - Ear pain [Unknown]
  - Immature granulocyte count increased [Unknown]
  - Lymphocyte count increased [Unknown]
  - Platelet count decreased [Unknown]
  - Red cell distribution width decreased [Unknown]
  - Red cell distribution width increased [Unknown]
  - White blood cell count increased [Unknown]

NARRATIVE: CASE EVENT DATE: 20240101
